FAERS Safety Report 5897768-4 (Version None)
Quarter: 2008Q3

REPORT INFORMATION
  Report Type: 
  Country: None (occurrence: None)
  Receive Date: 20080925
  Receipt Date: 20080918
  Transmission Date: 20090109
  Serious: Yes (Life-Threatening, Hospitalization, Other)
  Sender: FDA-Public Use
  Company Number: PHBS2008CA05313

PATIENT
  Sex: Male
  Weight: 15.9 kg

DRUGS (19)
  1. CYCLOSPORINE [Suspect]
     Indication: NEPHROTIC SYNDROME
     Dosage: 40 MG, BID
     Route: 048
     Dates: start: 20070520, end: 20070522
  2. CYCLOSPORINE [Suspect]
     Indication: FOCAL SEGMENTAL GLOMERULOSCLEROSIS
  3. PREDNISOLONE [Concomitant]
     Dosage: 20 MG/M2, TID
     Route: 048
  4. MYCOPHENOLATE MOFETIL [Concomitant]
     Dosage: 1200 MG/M2, DAY
  5. DEXAMETHASONE [Concomitant]
  6. FUROSEMIDE [Concomitant]
     Dosage: 8 MG/KG/DAY
  7. HYDROCHLOROTHIAZIDE [Concomitant]
     Dosage: 2.5 - 4.0 MG/KG/DAY
  8. SPIRONOLACTONE [Concomitant]
     Dosage: 2 MG/KG/DAY
  9. PENICILLIN V [Concomitant]
     Dosage: 50000 U/KG/DAY
  10. LOSARTAN [Concomitant]
     Indication: HYPERTENSION
     Dosage: 1.5MG/KG/DAY
  11. RAMIPRIL [Concomitant]
     Indication: HYPERTENSION
     Dosage: 0.6 MG/KG/DAY
  12. AMLODIPINE [Concomitant]
     Dosage: 0.5 MG/KG/DAY
  13. MINOXIDIL [Concomitant]
     Dosage: 0.5 MG/KG/DAY
  14. LABETALOL HCL [Concomitant]
     Dosage: 1.5 MG/KG/DAY
  15. IMMUNOGLOBULINS [Concomitant]
     Indication: PROPHYLAXIS
     Dosage: 1 G/KG/DOSE TWICE A WEEK
  16. CO-TRIMOXAZOLE [Concomitant]
     Indication: PROPHYLAXIS
  17. ALBUMIN [Concomitant]
     Dosage: 3 G/KG/DAY
  18. NIFEDIPINE [Concomitant]
  19. ENOXAPARIN SODIUM [Concomitant]

REACTIONS (6)
  - HAEMOLYTIC URAEMIC SYNDROME [None]
  - NEPHROTIC SYNDROME [None]
  - PROTEINURIA [None]
  - PULMONARY EMBOLISM [None]
  - RED BLOOD CELL SCHISTOCYTES PRESENT [None]
  - THROMBOCYTOPENIA [None]
